FAERS Safety Report 8871470 (Version 1)
Quarter: 2012Q4

REPORT INFORMATION
  Report Type: 
  Country: US (occurrence: US)
  Receive Date: 20121026
  Receipt Date: 20121026
  Transmission Date: 20130627
  Serious: No
  Sender: FDA-Public Use
  Company Number: US-AMGEN-USASP2012041327

PATIENT
  Sex: Female

DRUGS (9)
  1. ENBREL [Suspect]
     Indication: PRODUCT USED FOR UNKNOWN INDICATION
     Dosage: 50 mg, qwk
     Route: 058
  2. METHOTREXATE [Concomitant]
     Dosage: 2.5 mg, UNK
  3. NABUMETONE [Concomitant]
     Dosage: 500 mg, UNK
  4. VITAMIN B-1 [Concomitant]
     Dosage: 50 mg, UNK
  5. MULTIVITAMIN                       /00097801/ [Concomitant]
     Dosage: UNK
  6. VITAMIN E                          /00110501/ [Concomitant]
     Dosage: 600 unit, UNK
  7. PENNSAID [Concomitant]
     Dosage: 1.5 %, UNK
  8. D3 [Concomitant]
     Dosage: 400 unit, UNK
  9. FOLIC ACID [Concomitant]
     Dosage: UNK

REACTIONS (1)
  - Nasopharyngitis [Unknown]
